FAERS Safety Report 7637547-0 (Version None)
Quarter: 2011Q3

REPORT INFORMATION
  Report Type: 
  Country: None (occurrence: None)
  Receive Date: 20110726
  Receipt Date: 20110720
  Transmission Date: 20111222
  Serious: No
  Sender: FDA-Public Use
  Company Number: US-PFIZER INC-2011165087

PATIENT
  Age: 28 Year
  Sex: Male
  Weight: 90.703 kg

DRUGS (4)
  1. ADVIL PM [Suspect]
     Indication: HEADACHE
     Dosage: UNK
     Route: 048
     Dates: start: 20110719, end: 20110720
  2. DEPAKOTE [Concomitant]
     Dosage: UNK
  3. CELEXA [Concomitant]
     Dosage: UNK
  4. OMEPRAZOLE [Concomitant]
     Dosage: UNK

REACTIONS (2)
  - NONSPECIFIC REACTION [None]
  - INCORRECT DOSE ADMINISTERED [None]
